FAERS Safety Report 9337946 (Version 1)
Quarter: 2013Q2

REPORT INFORMATION
  Report Type: Spontaneous
  Country: US (occurrence: US)
  Receive Date: 20130609
  Receipt Date: 20130609
  Transmission Date: 20140414
  Serious: Yes (Other)
  Sender: FDA-Public Use
  Company Number: US-SANOFI-AVENTIS-2013SA057220

PATIENT
  Age: 77 Year
  Sex: Male

DRUGS (3)
  1. LANTUS SOLOSTAR [Suspect]
     Indication: DIABETES MELLITUS
     Dosage: PRODUCT STARTED 1 YEAR AGO DOSE:80 UNIT(S)
     Route: 051
  2. SOLOSTAR [Suspect]
     Indication: DIABETES MELLITUS
  3. COUMADIN [Concomitant]

REACTIONS (1)
  - Cardiac disorder [Unknown]
